FAERS Safety Report 4516207-9 (Version None)
Quarter: 2004Q4

REPORT INFORMATION
  Report Type: 
  Country: None (occurrence: None)
  Receive Date: 20041005
  Receipt Date: 20030812
  Transmission Date: 20050328
  Serious: Yes (Other)
  Sender: FDA-Public Use
  Company Number: NSADSS2003024795

PATIENT
  Age: 8 Year
  Sex: Male
  Weight: 25.4014 kg

DRUGS (6)
  1. CONCERTA [Suspect]
     Indication: ATTENTION DEFICIT/HYPERACTIVITY DISORDER
     Dosage: 18 MG, 1 IN 1 DAY, ORAL; 36 MG, 1 IN 1 DAY, ORAL
     Route: 048
     Dates: start: 20030301, end: 20030301
  2. CONCERTA [Suspect]
     Indication: ATTENTION DEFICIT/HYPERACTIVITY DISORDER
     Dosage: 18 MG, 1 IN 1 DAY, ORAL; 36 MG, 1 IN 1 DAY, ORAL
     Route: 048
     Dates: start: 20030301, end: 20030523
  3. QVAR (BECLOMETASONE DIPROPIONATE) [Concomitant]
  4. ALBUTEROL [Concomitant]
  5. MOTRIN [Concomitant]
  6. CLARITIN [Concomitant]

REACTIONS (3)
  - ABDOMINAL PAIN [None]
  - ANOREXIA [None]
  - WEIGHT DECREASED [None]
